FAERS Safety Report 5025797-1 (Version None)
Quarter: 2006Q2

REPORT INFORMATION
  Report Type: 
  Country: None (occurrence: None)
  Receive Date: 20060427
  Receipt Date: 20050512
  Transmission Date: 20061013
  Serious: Yes (Other)
  Sender: FDA-Public Use
  Company Number: 2005056535

PATIENT
  Age: 44 Year
  Sex: Female
  Weight: 124.7392 kg

DRUGS (2)
  1. ZITHROMAX [Suspect]
     Indication: BRONCHITIS
     Dosage: SEE IMAGE
     Route: 048
     Dates: end: 20050401
  2. ZITHROMAX [Suspect]
     Indication: BRONCHITIS
     Dosage: SEE IMAGE
     Route: 048
     Dates: start: 20050328

REACTIONS (6)
  - DEAFNESS [None]
  - EAR DISORDER [None]
  - EAR PAIN [None]
  - INFLAMMATION [None]
  - OTITIS MEDIA [None]
  - TINNITUS [None]
